FAERS Safety Report 20652168 (Version 1)
Quarter: 2022Q1

REPORT INFORMATION
  Report Type: Spontaneous
  Country: TR (occurrence: TR)
  Receive Date: 20220330
  Receipt Date: 20220330
  Transmission Date: 20220423
  Serious: Yes (Other)
  Sender: FDA-Public Use
  Company Number: TR-AMGEN-TURSP2022052641

PATIENT

DRUGS (3)
  1. PANITUMUMAB [Suspect]
     Active Substance: PANITUMUMAB
     Indication: Product used for unknown indication
     Dosage: UNK
     Route: 065
  2. CETUXIMAB [Suspect]
     Active Substance: CETUXIMAB
     Indication: Product used for unknown indication
     Dosage: UNK
     Route: 065
  3. ERLOTINIB [Suspect]
     Active Substance: ERLOTINIB
     Indication: Product used for unknown indication
     Dosage: UNK
     Route: 065

REACTIONS (11)
  - Xerosis [Unknown]
  - Dermatitis acneiform [Unknown]
  - Paronychia [Unknown]
  - Eczema [Unknown]
  - Pruritus [Unknown]
  - Intertrigo [Unknown]
  - Seborrhoeic dermatitis [Unknown]
  - Folliculitis [Unknown]
  - Blepharitis [Unknown]
  - Vitiligo [Unknown]
  - Alopecia [Unknown]
